FAERS Safety Report 15285292 (Version 2)
Quarter: 2018Q3

REPORT INFORMATION
  Report Type: Spontaneous
  Country: US (occurrence: US)
  Receive Date: 20180816
  Receipt Date: 20180822
  Transmission Date: 20181010
  Serious: No
  Sender: FDA-Public Use
  Company Number: US-UNITED THERAPEUTICS-UNT-2018-012689

PATIENT
  Age: 53 Year
  Sex: Male

DRUGS (6)
  1. TYVASO [Suspect]
     Active Substance: TREPROSTINIL
     Indication: PULMONARY HYPERTENSION
     Dosage: 36 ?G, QID
     Dates: start: 201808
  2. SILDENAFIL. [Suspect]
     Active Substance: SILDENAFIL
     Dosage: 60 MG
     Route: 048
  3. TYVASO [Suspect]
     Active Substance: TREPROSTINIL
     Indication: PULMONARY ARTERIAL HYPERTENSION
     Dosage: 72 ?G, QID
     Dates: start: 20151125
  4. LETAIRIS [Suspect]
     Active Substance: AMBRISENTAN
     Indication: PULMONARY HYPERTENSION
     Dosage: 10 MG, QD
     Route: 048
     Dates: start: 20171005
  5. LETAIRIS [Suspect]
     Active Substance: AMBRISENTAN
     Dosage: UNK
  6. SILDENAFIL. [Suspect]
     Active Substance: SILDENAFIL
     Indication: PULMONARY HYPERTENSION
     Dosage: 20 MG, TID
     Route: 048

REACTIONS (7)
  - Headache [Unknown]
  - Flushing [Unknown]
  - Peripheral swelling [Unknown]
  - Joint swelling [Unknown]
  - Chest pain [Unknown]
  - Dyspnoea [Unknown]
  - Off label use [Unknown]

NARRATIVE: CASE EVENT DATE: 201808
